FAERS Safety Report 16027077 (Version 1)
Quarter: 2019Q1

REPORT INFORMATION
  Report Type: Spontaneous
  Country: US (occurrence: US)
  Receive Date: 20190303
  Receipt Date: 20190303
  Transmission Date: 20190418
  Serious: No
  Sender: FDA-Public Use
  Company Number: US-IMPAX LABORATORIES, LLC-2018-IPXL-00587

PATIENT
  Age: 67 Year
  Sex: Male
  Weight: 96 kg

DRUGS (4)
  1. BACLOFEN. [Concomitant]
     Active Substance: BACLOFEN
     Indication: SPINAL COLUMN STENOSIS
     Dosage: 5 MG, 2 /DAY
     Route: 048
     Dates: start: 20180214
  2. RYTARY [Suspect]
     Active Substance: CARBIDOPA\LEVODOPA
     Indication: PARKINSON^S DISEASE
     Dosage: 48.75/195 MG, 4 CAPSULES 3 TIMES DAILY AND 3 CAPSULES ONCE DAILY AT BEDTIME
     Route: 048
     Dates: start: 2016
  3. ARICEPT [Concomitant]
     Active Substance: DONEPEZIL HYDROCHLORIDE
     Indication: DEMENTIA
     Dosage: UNK
     Route: 048
  4. CLOZAPINE. [Concomitant]
     Active Substance: CLOZAPINE
     Indication: HALLUCINATION
     Dosage: UNK
     Route: 048

REACTIONS (7)
  - Prescribed overdose [Unknown]
  - Hypotension [Recovered/Resolved]
  - Back pain [Recovered/Resolved]
  - Dementia [Recovered/Resolved]
  - Parkinson^s disease [Recovered/Resolved]
  - General physical health deterioration [Recovered/Resolved]
  - Dizziness [Recovered/Resolved]

NARRATIVE: CASE EVENT DATE: 201711
